FAERS Safety Report 6096323-3 (Version None)
Quarter: 2009Q1

REPORT INFORMATION
  Report Type: 
  Country: None (occurrence: None)
  Receive Date: 20090227
  Receipt Date: 20081113
  Transmission Date: 20090719
  Serious: No
  Sender: FDA-Public Use
  Company Number: A0756221A

PATIENT
  Age: 52 Year
  Sex: Male

DRUGS (3)
  1. LAMICTAL [Suspect]
     Dosage: 25MG PER DAY
     Route: 048
     Dates: start: 20081029
  2. LIPITOR [Concomitant]
  3. LOPRESSOR [Concomitant]

REACTIONS (2)
  - CHEST PAIN [None]
  - FATIGUE [None]
